FAERS Safety Report 5217159-9 (Version None)
Quarter: 2007Q1

REPORT INFORMATION
  Report Type: 
  Country: None (occurrence: None)
  Receive Date: 20070122
  Receipt Date: 20070122
  Transmission Date: 20070707
  Serious: Yes (Life-Threatening)
  Sender: FDA-Public Use
  Company Number: None

PATIENT
  Age: 93 Year
  Sex: Female
  Weight: 45.3597 kg

DRUGS (3)
  1. MACUGEN [Suspect]
     Indication: ELECTROMECHANICAL DISSOCIATION
     Dosage: 6WKS  INTRAOCULAR
     Route: 031
     Dates: start: 20060823
  2. MACUGEN [Suspect]
     Indication: ELECTROMECHANICAL DISSOCIATION
     Dosage: 6WKS  INTRAOCULAR
     Route: 031
     Dates: start: 20061009
  3. MACUGEN [Suspect]
     Indication: ELECTROMECHANICAL DISSOCIATION
     Dosage: 6WKS  INTRAOCULAR
     Route: 031
     Dates: start: 20061130

REACTIONS (1)
  - MYOCARDIAL INFARCTION [None]
